FAERS Safety Report 9487116 (Version 3)
Quarter: 2013Q3

REPORT INFORMATION
  Report Type: Spontaneous
  Country: US (occurrence: US)
  Receive Date: 20130829
  Receipt Date: 20130918
  Transmission Date: 20140515
  Serious: No
  Sender: FDA-Public Use
  Company Number: US-009507513-1308USA013748

PATIENT
  Age: 70 Year
  Sex: Female
  Weight: 65.76 kg

DRUGS (5)
  1. CLARITIN-D-12 [Suspect]
     Indication: RESPIRATORY TRACT CONGESTION
     Dosage: 5 MG, PRN
     Route: 048
     Dates: start: 201308
  2. CLARITIN-D-12 [Suspect]
     Indication: COUGH
  3. CLARITIN-D-12 [Suspect]
     Indication: MEDICAL OBSERVATION
  4. ASPIRIN [Concomitant]
     Indication: PRODUCT USED FOR UNKNOWN INDICATION
     Dosage: UNK, UNKNOWN
  5. ONE-A-DAY ESSENTIAL VITAMINS [Concomitant]
     Indication: PRODUCT USED FOR UNKNOWN INDICATION
     Dosage: UNK, UNKNOWN

REACTIONS (2)
  - Energy increased [Unknown]
  - Sleep disorder [Unknown]
